FAERS Safety Report 6291600-5 (Version None)
Quarter: 2009Q3

REPORT INFORMATION
  Report Type: 
  Country: None (occurrence: None)
  Receive Date: 20090730
  Receipt Date: 20090730
  Transmission Date: 20100115
  Serious: Yes (Death)
  Sender: FDA-Public Use
  Company Number: None

PATIENT
  Sex: Male
  Weight: 147.419 kg

DRUGS (1)
  1. AMLODIPINE [Suspect]
     Indication: HYPERTENSION
     Dosage: 5 MG ONCE A DAY PO
     Route: 048

REACTIONS (5)
  - CONFUSIONAL STATE [None]
  - DISEASE COMPLICATION [None]
  - DYSARTHRIA [None]
  - HYPERTENSIVE HEART DISEASE [None]
  - MALAISE [None]
